FAERS Safety Report 10511261 (Version 2)
Quarter: 2014Q4

REPORT INFORMATION
  Report Type: Spontaneous
  Country: JP (occurrence: None)
  Receive Date: 20141008
  Receipt Date: 20141103
  Transmission Date: 20150528
  Serious: Yes (Other)
  Sender: FDA-Public Use
  Company Number: JP-017245

PATIENT
  Age: 85 Year
  Sex: Male
  Weight: 45 kg

DRUGS (1)
  1. DEGARELIX (GONAX) (240 MG, 80 MG) [Suspect]
     Active Substance: DEGARELIX
     Indication: PROSTATE CANCER
     Dosage: TOTAL SUBCUTANEOUS
     Route: 058
     Dates: start: 20130528, end: 20130528

REACTIONS (6)
  - Pyrexia [None]
  - Cerebral infarction [None]
  - Urinary retention [None]
  - Haematuria [None]
  - Thalamic infarction [None]
  - Activities of daily living impaired [None]

NARRATIVE: CASE EVENT DATE: 20130618
